FAERS Safety Report 12674490 (Version 1)
Quarter: 2016Q3

REPORT INFORMATION
  Report Type: Spontaneous
  Country: US (occurrence: US)
  Receive Date: 20160822
  Receipt Date: 20160822
  Transmission Date: 20161109
  Serious: No
  Sender: FDA-Public Use
  Company Number: US-BEH-2016060607

PATIENT
  Sex: Female
  Weight: 78.47 kg

DRUGS (10)
  1. ZEMAIRA [Suspect]
     Active Substance: .ALPHA.1-PROTEINASE INHIBITOR HUMAN
     Route: 042
     Dates: start: 20150601
  2. DIPHENHYDRAMINE. [Concomitant]
     Active Substance: DIPHENHYDRAMINE
  3. AMARYL [Concomitant]
     Active Substance: GLIMEPIRIDE
  4. LIDOCAINE. [Concomitant]
     Active Substance: LIDOCAINE
  5. ZEMAIRA [Suspect]
     Active Substance: .ALPHA.1-PROTEINASE INHIBITOR HUMAN
  6. EPIPEN [Concomitant]
     Active Substance: EPINEPHRINE
  7. NOVOLOG [Concomitant]
     Active Substance: INSULIN ASPART
  8. ZEMAIRA [Suspect]
     Active Substance: .ALPHA.1-PROTEINASE INHIBITOR HUMAN
     Indication: ALPHA-1 ANTI-TRYPSIN DEFICIENCY
  9. SODIUM CHLORIDE. [Concomitant]
     Active Substance: SODIUM CHLORIDE
  10. OXYGEN. [Concomitant]
     Active Substance: OXYGEN

REACTIONS (1)
  - Blood pressure increased [Unknown]
